FAERS Safety Report 9781317 (Version 2)
Quarter: 2013Q4

REPORT INFORMATION
  Report Type: Report from Study
  Country: RS (occurrence: RS)
  Receive Date: 20131224
  Receipt Date: 20131224
  Transmission Date: 20140711
  Serious: Yes (Hospitalization)
  Sender: FDA-Public Use
  Company Number: RS-SA-CAMP-1002644

PATIENT
  Age: 41 Year
  Sex: Female
  Weight: 79.3 kg

DRUGS (22)
  1. ALEMTUZUMAB [Suspect]
     Indication: MULTIPLE SCLEROSIS
     Dosage: 12 MG, QD
     Route: 042
     Dates: start: 20090708, end: 20090709
  2. ALEMTUZUMAB [Suspect]
     Indication: MULTIPLE SCLEROSIS
     Dosage: 12 MG, QD
     Route: 042
     Dates: start: 20090921, end: 20090923
  3. ALEMTUZUMAB [Suspect]
     Indication: MULTIPLE SCLEROSIS
     Dosage: 12 MG, QD
     Route: 042
  4. METHYLPREDNISOLONE [Concomitant]
     Indication: MULTIPLE SCLEROSIS
     Dosage: 1 G, QD
     Route: 042
     Dates: start: 20090708, end: 20090709
  5. METHYLPREDNISOLONE [Concomitant]
     Indication: MULTIPLE SCLEROSIS
     Dosage: 1 G, QD
     Route: 042
     Dates: start: 20090921, end: 20090921
  6. METHYLPREDNISOLONE [Concomitant]
     Indication: MULTIPLE SCLEROSIS
     Dosage: 1 G, QD
     Route: 042
  7. METHYLPREDNISOLONE [Concomitant]
     Indication: MULTIPLE SCLEROSIS
     Dosage: 1 G, QD
     Route: 042
  8. RANITIDINE [Concomitant]
     Indication: PROPHYLAXIS
     Dosage: 150 MG, BID
     Route: 048
     Dates: start: 20121224
  9. INSULIN MIXTARD [Concomitant]
     Indication: DIABETES MELLITUS
     Dosage: 20 IU, QD
     Route: 059
     Dates: start: 20121227, end: 20130213
  10. INSULIN MIXTARD [Concomitant]
     Indication: DIABETES MELLITUS
     Dosage: 12 IU, QD
     Route: 059
     Dates: start: 20121227, end: 20130213
  11. ACTRAPID [Concomitant]
     Indication: DIABETES MELLITUS
     Dosage: 14 IU, TID
     Route: 059
     Dates: start: 20130214, end: 20130303
  12. ACTRAPID [Concomitant]
     Indication: DIABETES MELLITUS
     Dosage: 5 IU, TID
     Route: 059
     Dates: start: 20130304
  13. INSULATARD [Concomitant]
     Indication: DIABETES MELLITUS
     Dosage: 22 IU, QD
     Route: 059
     Dates: start: 20130214, end: 20130303
  14. INSULATARD [Concomitant]
     Indication: DIABETES MELLITUS
     Dosage: 10 IU, QD
     Route: 059
     Dates: start: 20130304
  15. GLUFORMIN [Concomitant]
     Indication: DIABETES MELLITUS
     Dosage: 1000 MG, BID
     Route: 048
     Dates: start: 20130214
  16. CIPROFLOXACIN [Concomitant]
     Indication: ANTI-INFECTIVE THERAPY
     Dosage: 500 MG, BID
     Route: 048
     Dates: start: 20130209, end: 20130218
  17. ALL OTHER THERAPEUTIC PRODUCTS [Concomitant]
     Indication: PROBIOTIC THERAPY
     Dosage: 5000000 OTHER, QD DOSE:5000000 OTHER
     Route: 048
     Dates: start: 20130209, end: 20130218
  18. ALL OTHER THERAPEUTIC PRODUCTS [Concomitant]
     Indication: PROPHYLAXIS
     Dosage: 5000000 OTHER, QD DOSE:5000000 OTHER
     Route: 048
     Dates: start: 20130209, end: 20130218
  19. ALPHAPRESS [Concomitant]
     Dosage: 2 MG, QD
     Route: 048
     Dates: start: 20130304, end: 20130307
  20. AMOXICILLIN/CLAVULANIC ACID [Concomitant]
     Indication: ANTI-INFECTIVE THERAPY
     Dosage: 625 MG, TID
     Route: 048
     Dates: start: 20130313, end: 20130322
  21. VITAMIN B1 W/VITAMIN B12 NOS/VITAMIN B6 [Concomitant]
     Dosage: 250 MG, QD
     Route: 030
     Dates: start: 20130328, end: 20130406
  22. LORAZEPAM [Concomitant]
     Dosage: 2.5 MG, QD
     Route: 048
     Dates: start: 20130328

REACTIONS (1)
  - Immune thrombocytopenic purpura [Recovered/Resolved with Sequelae]
